FAERS Safety Report 23545145 (Version 6)
Quarter: 2024Q3

REPORT INFORMATION
  Report Type: Spontaneous
  Country: US (occurrence: US)
  Receive Date: 20240220
  Receipt Date: 20240806
  Transmission Date: 20241017
  Serious: Yes (Hospitalization)
  Sender: PFIZER
  Company Number: US-PFIZER INC-202400042809

PATIENT
  Age: 53 Year
  Sex: Female
  Weight: 83.91 kg

DRUGS (6)
  1. CLINDAMYCIN PHOSPHATE [Suspect]
     Active Substance: CLINDAMYCIN PHOSPHATE
     Dosage: UNK
     Route: 061
  2. DOXYCYCLINE HYCLATE [Suspect]
     Active Substance: DOXYCYCLINE HYCLATE
     Indication: Acne
     Dosage: 100 MG, 2X/DAY
     Route: 048
  3. TRIAMCINOLONE ACETONIDE [Suspect]
     Active Substance: TRIAMCINOLONE ACETONIDE
     Indication: Acne
     Dosage: APPLY CREAM EXTRA TWICE DAILY AS NEEDED FOR FACE
     Route: 061
  4. HYDROQUINONE [Suspect]
     Active Substance: HYDROQUINONE
     Indication: Acne
     Dosage: MORNING TWICE DAILY EVENING AS NEEDED
  5. HYDROCORTISONE [Suspect]
     Active Substance: HYDROCORTISONE\HYDROCORTISONE ACETATE
     Indication: Acne
     Dosage: UNK UNK, AS NEEDED (EVENING, FROM FOUGERA)
  6. HYDROCORTISONE [Suspect]
     Active Substance: HYDROCORTISONE\HYDROCORTISONE ACETATE
     Dosage: UNK (MADE BY TARO)

REACTIONS (6)
  - Rash [Not Recovered/Not Resolved]
  - Dermatitis acneiform [Not Recovered/Not Resolved]
  - Skin discolouration [Not Recovered/Not Resolved]
  - Drug ineffective [Unknown]
  - Recalled product administered [Unknown]
  - General physical health deterioration [Unknown]

NARRATIVE: CASE EVENT DATE: 20231215
